FAERS Safety Report 4690760-7 (Version None)
Quarter: 2005Q2

REPORT INFORMATION
  Report Type: 
  Country: None (occurrence: None)
  Receive Date: 20050615
  Receipt Date: 20050609
  Transmission Date: 20051028
  Serious: Yes (Hospitalization)
  Sender: FDA-Public Use
  Company Number: JP-MERCK-0506USA01502

PATIENT
  Age: 60 Year
  Sex: Female

DRUGS (5)
  1. COZAAR [Suspect]
     Route: 048
  2. PONTAL [Concomitant]
     Route: 048
  3. NORFLOXACIN [Concomitant]
     Route: 048
  4. [THERAPY UNSPECIFIED] [Concomitant]
     Route: 048
  5. SULFADIMETHOXINE [Concomitant]
     Route: 051

REACTIONS (1)
  - TOXIC EPIDERMAL NECROLYSIS [None]
